FAERS Safety Report 9729293 (Version 2)
Quarter: 2014Q1

REPORT INFORMATION
  Report Type: Report from Study
  Country: US (occurrence: US)
  Receive Date: 20131204
  Receipt Date: 20140205
  Transmission Date: 20141002
  Serious: Yes (Hospitalization)
  Sender: FDA-Public Use
  Company Number: US-US-EMD SERONO, INC.-7253490

PATIENT
  Sex: Female

DRUGS (1)
  1. REBIF [Suspect]
     Indication: MULTIPLE SCLEROSIS
     Route: 058
     Dates: start: 20100324

REACTIONS (6)
  - Tooth abscess [Recovering/Resolving]
  - Muscular weakness [Not Recovered/Not Resolved]
  - Tooth disorder [Recovering/Resolving]
  - Muscle spasticity [Recovering/Resolving]
  - Gait disturbance [Recovering/Resolving]
  - Back pain [Recovering/Resolving]
